FAERS Safety Report 9900888 (Version 1)
Quarter: 2014Q1

REPORT INFORMATION
  Report Type: Report from Study
  Country: US (occurrence: US)
  Receive Date: 20140217
  Receipt Date: 20140217
  Transmission Date: 20141002
  Serious: No
  Sender: FDA-Public Use
  Company Number: US-ABBVIE-13P-163-1074434-00

PATIENT
  Sex: Male
  Weight: 93.07 kg

DRUGS (6)
  1. SIMCOR 1000/20 [Suspect]
     Indication: BLOOD TRIGLYCERIDES INCREASED
     Dates: start: 201210
  2. SIMCOR 1000/20 [Suspect]
     Dosage: 1000/20 MG
  3. ASA [Concomitant]
     Indication: PRODUCT USED FOR UNKNOWN INDICATION
  4. EXFORGE HCT [Concomitant]
     Indication: PRODUCT USED FOR UNKNOWN INDICATION
  5. BYSTOLIC [Concomitant]
     Indication: PRODUCT USED FOR UNKNOWN INDICATION
  6. BENAZEPRIL [Concomitant]
     Indication: PRODUCT USED FOR UNKNOWN INDICATION

REACTIONS (2)
  - Paraesthesia [Recovered/Resolved]
  - Blood triglycerides abnormal [Not Recovered/Not Resolved]
